FAERS Safety Report 24812686 (Version 1)
Quarter: 2025Q1

REPORT INFORMATION
  Report Type: Spontaneous
  Country: US (occurrence: US)
  Receive Date: 20250107
  Receipt Date: 20250107
  Transmission Date: 20250409
  Serious: Yes (Other)
  Sender: AMGEN
  Company Number: US-AMGEN-USASP2024256225

PATIENT
  Age: 89 Year
  Sex: Male

DRUGS (1)
  1. RITUXIMAB [Suspect]
     Active Substance: RITUXIMAB
     Indication: Acquired haemophilia
     Route: 065

REACTIONS (4)
  - Respiratory failure [Unknown]
  - Cardiac failure [Unknown]
  - Drug effective for unapproved indication [Unknown]
  - Off label use [Unknown]
